FAERS Safety Report 9969936 (Version 1)
Quarter: 2014Q1

REPORT INFORMATION
  Report Type: Spontaneous
  Country: US (occurrence: US)
  Receive Date: 20140306
  Receipt Date: 20140306
  Transmission Date: 20141002
  Serious: No
  Sender: FDA-Public Use
  Company Number: US-SANOFI-AVENTIS-2013SA088552

PATIENT
  Sex: Female

DRUGS (1)
  1. GAVISCON [Suspect]
     Route: 065

REACTIONS (3)
  - Pain in extremity [Unknown]
  - Myalgia [Unknown]
  - Drug ineffective [Unknown]
